FAERS Safety Report 13492817 (Version 2)
Quarter: 2017Q2

REPORT INFORMATION
  Report Type: Spontaneous
  Country: None (occurrence: US)
  Receive Date: 20170427
  Receipt Date: 20170512
  Transmission Date: 20170830
  Serious: Yes (Other)
  Sender: FDA-Public Use
  Company Number: US-ALLERGAN-1716301US

PATIENT
  Age: 93 Year
  Sex: Female

DRUGS (3)
  1. ALPHAGAN P [Suspect]
     Active Substance: BRIMONIDINE TARTRATE
     Indication: GLAUCOMA
     Dosage: UNK, TID
     Route: 047
  2. PILOCARPINE. [Concomitant]
     Active Substance: PILOCARPINE
  3. TRAVATAN [Concomitant]
     Active Substance: TRAVOPROST
     Dosage: UNK UNK, QD
     Route: 047

REACTIONS (1)
  - No adverse event [Unknown]
